FAERS Safety Report 8126519-8 (Version None)
Quarter: 2012Q1

REPORT INFORMATION
  Report Type: 
  Country: None (occurrence: None)
  Receive Date: 20120210
  Receipt Date: 20120202
  Transmission Date: 20120608
  Serious: Yes (Other)
  Sender: FDA-Public Use
  Company Number: US-AMGEN-USASP2011063876

PATIENT
  Age: 45 Year
  Sex: Female

DRUGS (7)
  1. VITAMIN D [Concomitant]
  2. NORCO [Concomitant]
  3. ENBREL [Suspect]
     Indication: RHEUMATOID ARTHRITIS
     Dosage: 25 MG, ONCE IN THREE DAYS
     Dates: start: 20111122, end: 20111129
  4. FOLIC ACID [Concomitant]
     Dosage: 1 MG, QD
  5. TOPROL-XL [Concomitant]
     Dosage: 1 MG, QWK
  6. FENTANYL CITRATE [Concomitant]
     Dosage: 1 MUG, QD
  7. METHOTREXATE [Concomitant]
     Dosage: 1 MG, QWK

REACTIONS (5)
  - CHEST PAIN [None]
  - PALPITATIONS [None]
  - SYNCOPE [None]
  - HEART RATE DECREASED [None]
  - BLOOD PRESSURE DECREASED [None]
